FAERS Safety Report 25157426 (Version 1)
Quarter: 2025Q2

REPORT INFORMATION
  Report Type: Spontaneous
  Country: CA (occurrence: CA)
  Receive Date: 20250403
  Receipt Date: 20250403
  Transmission Date: 20250716
  Serious: Yes (Other)
  Sender: FRESENIUS KABI
  Company Number: CA-FreseniusKabi-FK202504705

PATIENT
  Age: 73 Year
  Sex: Female

DRUGS (1)
  1. DIPYRIDAMOLE [Suspect]
     Active Substance: DIPYRIDAMOLE
     Indication: Cardiac stress test

REACTIONS (5)
  - Blood pressure decreased [Unknown]
  - Cold sweat [Unknown]
  - Nasopharyngitis [Unknown]
  - Presyncope [Unknown]
  - Unresponsive to stimuli [Unknown]
